FAERS Safety Report 7320736-2 (Version None)
Quarter: 2011Q1

REPORT INFORMATION
  Report Type: 
  Country: None (occurrence: None)
  Receive Date: 20110216
  Receipt Date: 20110126
  Transmission Date: 20110831
  Serious: No
  Sender: FDA-Public Use
  Company Number: 2011-00038

PATIENT
  Age: 68 Year
  Sex: Male
  Weight: 74.3899 kg

DRUGS (2)
  1. ZOCOR [Concomitant]
  2. ZICAM COLD REMEDY RAPIDMELTS WITH VITAMIN C [Suspect]
     Dosage: Q 4-5 HRS. - OINGOING
     Dates: start: 20110123, end: 20110123

REACTIONS (1)
  - AGEUSIA [None]
